FAERS Safety Report 23835722 (Version 6)
Quarter: 2025Q2

REPORT INFORMATION
  Report Type: Report from Study
  Country: US (occurrence: US)
  Receive Date: 20240509
  Receipt Date: 20250504
  Transmission Date: 20250717
  Serious: Yes (Other)
  Sender: SANOFI AVENTIS
  Company Number: US-SA-SAC20240508000118

PATIENT
  Age: 60 Year
  Sex: Female
  Weight: 94 kg

DRUGS (12)
  1. SARILUMAB [Suspect]
     Active Substance: SARILUMAB
  2. KEVZARA [Suspect]
     Active Substance: SARILUMAB
     Indication: Polymyalgia rheumatica
     Dosage: 200 MG, QOW
     Route: 058
     Dates: start: 202402, end: 2024
  3. CIPROFLOXACIN [Interacting]
     Active Substance: CIPROFLOXACIN
     Indication: Diverticulitis
     Dates: start: 202407, end: 2024
  4. TIZANIDINE HYDROCHLORIDE [Interacting]
     Active Substance: TIZANIDINE HYDROCHLORIDE
  5. VITAMIN D3 [Concomitant]
     Active Substance: CHOLECALCIFEROL
  6. CALCIUM [Concomitant]
     Active Substance: CALCIUM
  7. ZOCOR [Concomitant]
     Active Substance: SIMVASTATIN
  8. ATIVAN [Concomitant]
     Active Substance: LORAZEPAM
  9. GABAPENTIN [Concomitant]
     Active Substance: GABAPENTIN
  10. METHOTREXATE [Concomitant]
     Active Substance: METHOTREXATE
  11. CYANOCOBALAMIN [Concomitant]
     Active Substance: CYANOCOBALAMIN
  12. ZOLOFT [Concomitant]
     Active Substance: SERTRALINE HYDROCHLORIDE

REACTIONS (21)
  - Diverticulitis [Unknown]
  - Polymyalgia rheumatica [Not Recovered/Not Resolved]
  - Peripheral swelling [Not Recovered/Not Resolved]
  - Mobility decreased [Not Recovered/Not Resolved]
  - Arthralgia [Not Recovered/Not Resolved]
  - Joint stiffness [Not Recovered/Not Resolved]
  - Injection site pain [Not Recovered/Not Resolved]
  - Back pain [Unknown]
  - Pain in extremity [Unknown]
  - Rhinorrhoea [Not Recovered/Not Resolved]
  - Malaise [Unknown]
  - Stomatitis [Unknown]
  - Condition aggravated [Unknown]
  - Dehydration [Unknown]
  - Discomfort [Not Recovered/Not Resolved]
  - Musculoskeletal stiffness [Unknown]
  - Hypotension [Unknown]
  - Drug interaction [Unknown]
  - Spinal fusion surgery [Unknown]
  - Hepatic enzyme increased [Unknown]
  - White blood cell count decreased [Unknown]

NARRATIVE: CASE EVENT DATE: 20240101
